FAERS Safety Report 4596695-2 (Version None)
Quarter: 2005Q1

REPORT INFORMATION
  Report Type: 
  Country: None (occurrence: None)
  Receive Date: 20050302
  Receipt Date: 20050119
  Transmission Date: 20050727
  Serious: Yes (Other)
  Sender: FDA-Public Use
  Company Number: US-GLAXOSMITHKLINE-A0541306A

PATIENT
  Age: 26 Year
  Sex: Female
  Weight: 65.9 kg

DRUGS (3)
  1. LAMICTAL [Suspect]
     Route: 048
     Dates: start: 20031001, end: 20050101
  2. EFFEXOR XR [Concomitant]
     Indication: DEPRESSION
     Route: 048
     Dates: start: 20030601
  3. BIRTH CONTROL [Concomitant]

REACTIONS (3)
  - ANKLE FRACTURE [None]
  - BONE DENSITY DECREASED [None]
  - OSTEOPENIA [None]
